FAERS Safety Report 10335680 (Version 1)
Quarter: 2014Q3

REPORT INFORMATION
  Report Type: Spontaneous
  Country: US (occurrence: US)
  Receive Date: 20140723
  Receipt Date: 20140723
  Transmission Date: 20150326
  Serious: No
  Sender: FDA-Public Use
  Company Number: US-BRISTOL-MYERS SQUIBB COMPANY-18989632

PATIENT
  Age: 76 Year
  Sex: Female

DRUGS (1)
  1. COUMADIN [Suspect]
     Active Substance: WARFARIN SODIUM
     Dosage: NOW TAKING:?2.5MG ONE DAY PER WEEK AND 5MG DAILY THE REST OF THE WEEK.

REACTIONS (1)
  - International normalised ratio increased [Unknown]
